FAERS Safety Report 19657123 (Version 1)
Quarter: 2021Q3

REPORT INFORMATION
  Report Type: Spontaneous
  Country: US (occurrence: US)
  Receive Date: 20210804
  Receipt Date: 20210804
  Transmission Date: 20211014
  Serious: No
  Sender: FDA-Public Use
  Company Number: US-MATRIXX INITIATIVES, INC.-2114612

PATIENT
  Age: 26 Year
  Sex: Male
  Weight: 84.09 kg

DRUGS (1)
  1. ZICAM INTENSE SINUS RELIEF [Suspect]
     Active Substance: OXYMETAZOLINE HYDROCHLORIDE
     Indication: HYPERSENSITIVITY
     Route: 045
     Dates: start: 20210801, end: 20210801

REACTIONS (2)
  - Ageusia [None]
  - Anosmia [None]
